FAERS Safety Report 23139028 (Version 1)
Quarter: 2023Q4

REPORT INFORMATION
  Report Type: Spontaneous
  Country: CN (occurrence: CN)
  Receive Date: 20231102
  Receipt Date: 20231102
  Transmission Date: 20240110
  Serious: Yes (Other)
  Sender: FDA-Public Use
  Company Number: CN-PFIZER INC-PV202300178055

PATIENT
  Age: 74 Year
  Sex: Male
  Weight: 85 kg

DRUGS (2)
  1. ZYVOX [Suspect]
     Active Substance: LINEZOLID
     Indication: Therapeutic procedure
     Dosage: 0.6 G, 2X/DAY
     Route: 041
     Dates: start: 20230905, end: 20230908
  2. MEROPENEM [Concomitant]
     Active Substance: MEROPENEM
     Indication: Therapeutic procedure
     Dosage: 1 G, 3X/DAY
     Route: 041
     Dates: start: 20230905, end: 20230908

REACTIONS (2)
  - Haemorrhage subcutaneous [Unknown]
  - Rash [Not Recovered/Not Resolved]

NARRATIVE: CASE EVENT DATE: 20230908
